FAERS Safety Report 13829388 (Version 1)
Quarter: 2017Q3

REPORT INFORMATION
  Report Type: Spontaneous
  Country: CL (occurrence: CL)
  Receive Date: 20170803
  Receipt Date: 20170803
  Transmission Date: 20171127
  Serious: Yes (Congenital Anomaly)
  Sender: FDA-Public Use
  Company Number: CL-EMD SERONO-8172682

PATIENT

DRUGS (2)
  1. CLOMIPHENE CITRATE. [Suspect]
     Active Substance: CLOMIPHENE CITRATE
     Indication: OVULATION INDUCTION
  2. LETROZOLE. [Suspect]
     Active Substance: LETROZOLE
     Indication: OVULATION INDUCTION

REACTIONS (2)
  - Foetal exposure during pregnancy [Recovered/Resolved]
  - Cleft palate [Unknown]
